FAERS Safety Report 4335109-4 (Version None)
Quarter: 2004Q2

REPORT INFORMATION
  Report Type: 
  Country: None (occurrence: None)
  Receive Date: 20040408
  Receipt Date: 20040317
  Transmission Date: 20050107
  Serious: Yes (Hospitalization)
  Sender: FDA-Public Use
  Company Number: PHBS2004JP03742

PATIENT
  Age: 53 Year
  Sex: Female
  Weight: 55 kg

DRUGS (2)
  1. LOCHOL [Suspect]
     Indication: HYPERCHOLESTEROLAEMIA
     Dosage: 20 MG/DAY
     Route: 048
     Dates: start: 20010417, end: 20040220
  2. THEOLONG [Concomitant]
     Indication: ASTHMA
     Dosage: 400 MG, UNK
     Route: 048
     Dates: start: 20010417, end: 20040220

REACTIONS (4)
  - ABDOMINAL PAIN LOWER [None]
  - COLITIS ISCHAEMIC [None]
  - MELAENA [None]
  - WHITE BLOOD CELL COUNT INCREASED [None]
